FAERS Safety Report 7555544-0 (Version None)
Quarter: 2011Q2

REPORT INFORMATION
  Report Type: 
  Country: None (occurrence: None)
  Receive Date: 20110617
  Receipt Date: 20050214
  Transmission Date: 20111010
  Serious: Yes (Hospitalization)
  Sender: FDA-Public Use
  Company Number: PHHO2004JP16411

PATIENT
  Sex: Female

DRUGS (8)
  1. URINORM [Concomitant]
     Indication: HYPERURICAEMIA
     Dates: start: 20030701
  2. NORVASC [Concomitant]
     Indication: HYPERTENSION
     Dates: start: 20041025
  3. MOBIC [Concomitant]
     Indication: OSTEOARTHRITIS
     Dosage: 10 MG, UNK
     Dates: start: 20010312, end: 20041024
  4. MUCOSTA [Concomitant]
     Indication: GASTRITIS
     Dates: start: 20010109
  5. LANSOPRAZOLE [Concomitant]
     Dates: start: 20041025
  6. ADALAT CC [Concomitant]
     Indication: HYPERTENSION
     Dates: start: 20010109, end: 20041024
  7. LOCHOLEST [Suspect]
     Indication: HYPERCHOLESTEROLAEMIA
     Dosage: 20 MG, QD
     Route: 048
     Dates: start: 20011030, end: 20041024
  8. TAGAMET [Concomitant]
     Indication: GASTRITIS
     Dates: start: 20010109, end: 20041024

REACTIONS (11)
  - OESOPHAGEAL ULCER [None]
  - ANAEMIA [None]
  - REFLUX OESOPHAGITIS [None]
  - HAEMATEMESIS [None]
  - MELAENA [None]
  - UPPER GASTROINTESTINAL HAEMORRHAGE [None]
  - HAEMATOCRIT DECREASED [None]
  - ELECTROCARDIOGRAM T WAVE AMPLITUDE DECREASED [None]
  - SUPRAVENTRICULAR EXTRASYSTOLES [None]
  - HAEMOGLOBIN DECREASED [None]
  - RED BLOOD CELL COUNT DECREASED [None]
